FAERS Safety Report 9656342 (Version 1)
Quarter: 2013Q4

REPORT INFORMATION
  Report Type: Spontaneous
  Country: US (occurrence: US)
  Receive Date: 20131030
  Receipt Date: 20131030
  Transmission Date: 20140711
  Serious: No
  Sender: FDA-Public Use
  Company Number: US-PFIZER INC-2013309175

PATIENT
  Age: 59 Year
  Sex: Male
  Weight: 143.76 kg

DRUGS (13)
  1. GABAPENTIN [Suspect]
     Indication: DIABETIC NEUROPATHY
     Dosage: 300 MG, 2X/DAY
     Route: 048
     Dates: start: 2011, end: 2013
  2. CHONDROITIN/GLUCOSAMINE [Concomitant]
     Dosage: 750/600 MG, 2X/DAY
     Route: 048
  3. OMEGA 3 FISH OIL [Concomitant]
     Dosage: 5000MG (3 CAPSULES OF 1000MG IN MORNING AND 2 CAPSULES OF 1000MG IN EVENING)
     Route: 048
  4. CALCIUM/VITAMIN D [Concomitant]
     Dosage: UNK, 2X/DAY
  5. ASPIRIN [Concomitant]
     Dosage: 81 MG, 1X/DAY
  6. CENTRUM [Concomitant]
     Dosage: UNK, 1X/DAY
     Route: 048
  7. SIMVASTATIN [Concomitant]
     Dosage: 40 MG, 1X/DAY
     Route: 048
  8. FUROSEMIDE [Concomitant]
     Dosage: 20 MG, ALTERNATE DAY
     Route: 048
  9. GLIPIZIDE [Concomitant]
     Dosage: 10 MG, 1X/DAY
  10. ATENOLOL [Concomitant]
     Dosage: 50 MG, 1X/DAY
  11. LISINOPRIL [Concomitant]
     Dosage: 10 MG, 1X/DAY
  12. ULORIC [Concomitant]
     Dosage: 40 MG, 1X/DAY
  13. OXYCODONE/ACETAMINOPHEN [Concomitant]
     Dosage: 5/325 MG, 2X/DAY

REACTIONS (2)
  - Off label use [Unknown]
  - Drug ineffective for unapproved indication [Unknown]
